FAERS Safety Report 7518644-7 (Version None)
Quarter: 2011Q2

REPORT INFORMATION
  Report Type: 
  Country: None (occurrence: None)
  Receive Date: 20110512
  Receipt Date: 20110324
  Transmission Date: 20111010
  Serious: No
  Sender: FDA-Public Use
  Company Number: 1000019516

PATIENT
  Age: 68 Year
  Sex: Female

DRUGS (6)
  1. AMBIEN [Concomitant]
  2. GABAPENTIN (GABAPENTIN) (GABAPENTIN) [Concomitant]
  3. SAVELLA [Suspect]
     Indication: FIBROMYALGIA
     Dosage: SEE IMAGE
     Route: 048
     Dates: start: 20110218, end: 20110219
  4. SAVELLA [Suspect]
     Indication: FIBROMYALGIA
     Dosage: SEE IMAGE
     Route: 048
     Dates: start: 20110224
  5. SAVELLA [Suspect]
     Indication: FIBROMYALGIA
     Dosage: SEE IMAGE
     Route: 048
     Dates: start: 20110217, end: 20110217
  6. SAVELLA [Suspect]
     Indication: FIBROMYALGIA
     Dosage: SEE IMAGE
     Route: 048
     Dates: start: 20110220, end: 20110223

REACTIONS (5)
  - NIGHTMARE [None]
  - WEIGHT DECREASED [None]
  - HEADACHE [None]
  - NIGHT SWEATS [None]
  - DIARRHOEA [None]
